FAERS Safety Report 4534218-4 (Version None)
Quarter: 2004Q4

REPORT INFORMATION
  Report Type: 
  Country: None (occurrence: None)
  Receive Date: 20041214
  Receipt Date: 20040828
  Transmission Date: 20050328
  Serious: No
  Sender: FDA-Public Use
  Company Number: 2004233099US

PATIENT
  Sex: Female

DRUGS (2)
  1. BEXTRA [Suspect]
     Indication: LOCALISED OSTEOARTHRITIS
  2. GLUCOSAMINE W/CHONDROITIN SULFATES (MANGANESE) [Suspect]
     Indication: LOCALISED OSTEOARTHRITIS

REACTIONS (2)
  - DRUG INEFFECTIVE [None]
  - DRUG INTERACTION [None]
